FAERS Safety Report 4940715-X (Version None)
Quarter: 2006Q1

REPORT INFORMATION
  Report Type: 
  Country: None (occurrence: None)
  Receive Date: 20060307
  Receipt Date: 20060221
  Transmission Date: 20060701
  Serious: No
  Sender: FDA-Public Use
  Company Number: 2006-138108-NL

PATIENT
  Age: 32 Year
  Sex: Female

DRUGS (6)
  1. CHORIONIC GONADOTROPIN [Suspect]
     Indication: OVULATION INDUCTION
     Dosage: 10000 IU
  2. PROGESTERONE W/ESTROGENS/ [Suspect]
     Indication: IN VITRO FERTILISATION
     Dosage: 200 MG
     Route: 067
  3. ORAL CONTRACEPTIVE NOS [Suspect]
     Indication: IN VITRO FERTILISATION
     Dosage: DF
  4. LEUPROLIDE ACETATE [Suspect]
     Dosage: SEE IMAGE
  5. UROFOLLITROPIN [Suspect]
     Indication: IN VITRO FERTILISATION
     Dosage: 75 IU
  6. MENOTROPINS [Suspect]
     Indication: IN VITRO FERTILISATION
     Dosage: SEE IMAGE

REACTIONS (15)
  - ABDOMINAL PAIN [None]
  - AXILLARY VEIN THROMBOSIS [None]
  - BLOOD POTASSIUM DECREASED [None]
  - BLOOD SODIUM DECREASED [None]
  - DYSPNOEA [None]
  - HAEMATOCRIT INCREASED [None]
  - JUGULAR VEIN THROMBOSIS [None]
  - LOCAL SWELLING [None]
  - NECK PAIN [None]
  - OVARIAN HYPERSTIMULATION SYNDROME [None]
  - PROTEIN TOTAL [None]
  - PROTEIN TOTAL DECREASED [None]
  - SUBCLAVIAN VEIN THROMBOSIS [None]
  - VACUUM EXTRACTOR DELIVERY [None]
  - WEIGHT INCREASED [None]
